FAERS Safety Report 21962786 (Version 2)
Quarter: 2023Q1

REPORT INFORMATION
  Report Type: Spontaneous
  Country: US (occurrence: US)
  Receive Date: 20230207
  Receipt Date: 20230209
  Transmission Date: 20230418
  Serious: No
  Sender: FDA-Public Use
  Company Number: US-PFIZER INC-202300053431

PATIENT
  Age: 48 Year
  Sex: Male
  Weight: 113.4 kg

DRUGS (3)
  1. PROTONIX [Suspect]
     Active Substance: PANTOPRAZOLE SODIUM
     Indication: Oesophageal disorder
     Dosage: 40 MG, 1X/DAY
     Dates: start: 2021
  2. PANTOPRAZOLE [Suspect]
     Active Substance: PANTOPRAZOLE
     Indication: Oesophageal disorder
     Dosage: 40 MG, 1X/DAY
  3. DICLOFENAC [Concomitant]
     Active Substance: DICLOFENAC
     Indication: Fibromyalgia
     Dosage: 50 MG, 3X/DAY

REACTIONS (1)
  - Drug screen positive [Unknown]
